FAERS Safety Report 6983728-9 (Version None)
Quarter: 2010Q3

REPORT INFORMATION
  Report Type: 
  Country: None (occurrence: None)
  Receive Date: 20100914
  Receipt Date: 20020314
  Transmission Date: 20110219
  Serious: Yes (Hospitalization)
  Sender: FDA-Public Use
  Company Number: US-WYE-H07127508

PATIENT
  Age: 62 Year
  Sex: Male
  Weight: 64 kg

DRUGS (4)
  1. IBUPROFEN [Suspect]
     Indication: MUSCULOSKELETAL PAIN
     Dosage: 800 MG 8-12 DAILY
     Route: 048
  2. TYLENOL W/ CODEINE NO. 3 [Concomitant]
     Dosage: UNKNOWN
     Route: 048
  3. HYDROXYUREA [Concomitant]
     Dosage: UNKNOWN
     Route: 048
  4. PREDNISONE [Concomitant]
     Dosage: UNKNOWN
     Route: 048

REACTIONS (2)
  - DUODENAL ULCER [None]
  - OVERDOSE [None]
